FAERS Safety Report 4435780-2 (Version None)
Quarter: 2004Q3

REPORT INFORMATION
  Report Type: 
  Country: None (occurrence: None)
  Receive Date: 20040726
  Receipt Date: 20040423
  Transmission Date: 20050211
  Serious: No
  Sender: FDA-Public Use
  Company Number: USA040465082

PATIENT
  Age: 66 Year
  Sex: Female
  Weight: 115 kg

DRUGS (3)
  1. FORTEO [Suspect]
     Indication: OSTEOPOROSIS
     Dates: start: 20040401
  2. CELEBREX [Concomitant]
  3. NAPROXEN [Concomitant]

REACTIONS (2)
  - DYSPEPSIA [None]
  - FEELING HOT [None]
